FAERS Safety Report 20440019 (Version 1)
Quarter: 2022Q1

REPORT INFORMATION
  Report Type: Spontaneous
  Country: JM (occurrence: None)
  Receive Date: 20220205
  Receipt Date: 20220205
  Transmission Date: 20220423
  Serious: Yes (Other)
  Sender: FDA-Public Use
  Company Number: None

PATIENT
  Age: 26 Year
  Sex: Female
  Weight: 85.5 kg

DRUGS (6)
  1. FLAGYL [Suspect]
     Active Substance: METRONIDAZOLE\METRONIDAZOLE HYDROCHLORIDE
     Indication: Upper respiratory tract infection
     Dosage: FREQUENCY : EVERY 12 HOURS;?
     Route: 048
     Dates: start: 20220203
  2. PREDNISONE [Suspect]
     Active Substance: PREDNISONE
     Indication: Upper respiratory tract infection
     Dosage: FREQUENCY : EVERY 12 HOURS;?
     Route: 048
     Dates: start: 20220203
  3. AZITHROMYCIN [Suspect]
     Active Substance: AZITHROMYCIN
  4. Betnesol nose drops [Concomitant]
  5. Covonia chesty [Concomitant]
  6. LANZAP [Concomitant]

REACTIONS (2)
  - Abdominal pain upper [None]
  - Abdominal pain upper [None]

NARRATIVE: CASE EVENT DATE: 20220204
